FAERS Safety Report 4429230-X (Version None)
Quarter: 2004Q3

REPORT INFORMATION
  Report Type: 
  Country: None (occurrence: None)
  Receive Date: 20040817
  Receipt Date: 20040817
  Transmission Date: 20050211
  Serious: Yes (Hospitalization)
  Sender: FDA-Public Use
  Company Number: None

PATIENT
  Age: 42 Year
  Sex: Female
  Weight: 72 kg

DRUGS (2)
  1. RITUXAN [Suspect]
     Indication: CLOSTRIDIUM COLITIS
     Dosage: 375 MG/M2 WEEKLY INTRAVENOUS
     Route: 042
     Dates: start: 20040212, end: 20040514
  2. ANTIBIOTICS [Concomitant]

REACTIONS (2)
  - CLOSTRIDIUM COLITIS [None]
  - ENTEROCOLITIS INFECTIOUS [None]
